FAERS Safety Report 5598892-6 (Version None)
Quarter: 2008Q1

REPORT INFORMATION
  Report Type: 
  Country: None (occurrence: None)
  Receive Date: 20080122
  Receipt Date: 20080117
  Transmission Date: 20080703
  Serious: Yes (Hospitalization)
  Sender: FDA-Public Use
  Company Number: GB-RANBAXY-2008RR-12653

PATIENT

DRUGS (12)
  1. DOXAZOSIN 2MG TABLETS [Suspect]
     Indication: HYPERTENSION
     Dosage: UNK
     Route: 048
     Dates: end: 20050801
  2. LISINOPRIL 2.5MG TABLETS [Suspect]
     Indication: HYPERTENSION
     Dosage: UNK
     Route: 048
     Dates: end: 20050801
  3. DILTIAZEM HCL [Concomitant]
  4. ASPIRIN TABLETS BP 300MG [Concomitant]
  5. CITALOPRAM HYDROBROMIDE [Concomitant]
  6. TELMISARTAN [Concomitant]
  7. ADCAL D3 [Concomitant]
  8. ATORVASTATIN [Concomitant]
  9. SENNA [Concomitant]
  10. LANSOPRAZOLE [Concomitant]
  11. RISEDRONATE SODIUM [Concomitant]
  12. PARACETAMOL CAPSULES 500MG [Concomitant]

REACTIONS (5)
  - DIZZINESS [None]
  - FALL [None]
  - FEMUR FRACTURE [None]
  - HYPOTENSION [None]
  - MITRAL VALVE INCOMPETENCE [None]
